FAERS Safety Report 12495484 (Version 1)
Quarter: 2016Q2

REPORT INFORMATION
  Report Type: Spontaneous
  Country: US (occurrence: US)
  Receive Date: 20160624
  Receipt Date: 20160624
  Transmission Date: 20160815
  Serious: No
  Sender: FDA-Public Use
  Company Number: US-PFIZER INC-2016315329

PATIENT
  Age: 44 Year
  Sex: Female
  Weight: 73 kg

DRUGS (3)
  1. NATURAL THYROID (NDT) [Concomitant]
     Indication: AUTOIMMUNE THYROIDITIS
  2. NATURAL THYROID (NDT) [Concomitant]
     Indication: THYROID DISORDER
     Dosage: UNK UNK, 1X/DAY, 2 GRAINS
     Route: 048
     Dates: start: 2012
  3. CYTOMEL [Suspect]
     Active Substance: LIOTHYRONINE SODIUM
     Indication: AUTOIMMUNE THYROIDITIS
     Dosage: 150 UG, 1X/DAY
     Route: 048

REACTIONS (6)
  - Antibody test abnormal [Not Recovered/Not Resolved]
  - Weight increased [Not Recovered/Not Resolved]
  - Malaise [Unknown]
  - Reaction to drug excipients [Unknown]
  - Hepatic enzyme increased [Not Recovered/Not Resolved]
  - Product formulation issue [Unknown]

NARRATIVE: CASE EVENT DATE: 201602
